FAERS Safety Report 7362205-X (Version None)
Quarter: 2011Q1

REPORT INFORMATION
  Report Type: 
  Country: None (occurrence: None)
  Receive Date: 20110318
  Receipt Date: 20110309
  Transmission Date: 20110831
  Serious: Yes (Other)
  Sender: FDA-Public Use
  Company Number: US-AMGEN-QUU412996

PATIENT
  Sex: Male
  Weight: 2.585 kg

DRUGS (3)
  1. PRENATAL VITAMINS                  /02014401/ [Concomitant]
     Route: 064
  2. PREDNISONE [Concomitant]
     Route: 064
  3. ENBREL [Suspect]
     Indication: RHEUMATOID ARTHRITIS
     Dosage: UNK UNK, QWK
     Route: 064
     Dates: start: 20051102, end: 20090101

REACTIONS (1)
  - PREMATURE BABY [None]
